FAERS Safety Report 6064711-7 (Version None)
Quarter: 2009Q1

REPORT INFORMATION
  Report Type: 
  Country: None (occurrence: None)
  Receive Date: 20090204
  Receipt Date: 20080801
  Transmission Date: 20090719
  Serious: Yes (Life-Threatening, Hospitalization, Other)
  Sender: FDA-Public Use
  Company Number: A0738208A

PATIENT
  Age: 50 Year
  Sex: Male
  Weight: 95 kg

DRUGS (1)
  1. ARIXTRA [Suspect]
     Indication: KNEE ARTHROPLASTY
     Dosage: 2.5MG PER DAY
     Route: 058
     Dates: start: 20080708, end: 20080708

REACTIONS (1)
  - DEEP VEIN THROMBOSIS [None]
